FAERS Safety Report 19770905 (Version 3)
Quarter: 2021Q3

REPORT INFORMATION
  Report Type: Report from Study
  Country: None (occurrence: US)
  Receive Date: 20210831
  Receipt Date: 20210924
  Transmission Date: 20211014
  Serious: Yes (Disabling, Other)
  Sender: FDA-Public Use
  Company Number: US-ABBVIE-21K-163-4059065-00

PATIENT
  Sex: Female
  Weight: 123.94 kg

DRUGS (2)
  1. SKYRIZI [Suspect]
     Active Substance: RISANKIZUMAB-RZAA
     Indication: PSORIASIS
     Route: 058
     Dates: start: 2018
  2. SKYRIZI [Suspect]
     Active Substance: RISANKIZUMAB-RZAA
     Indication: PSORIATIC ARTHROPATHY

REACTIONS (4)
  - Head injury [Not Recovered/Not Resolved]
  - Diabetic blindness [Not Recovered/Not Resolved]
  - Gastric bypass [Unknown]
  - Blindness unilateral [Not Recovered/Not Resolved]
